FAERS Safety Report 7819542-1 (Version None)
Quarter: 2011Q4

REPORT INFORMATION
  Report Type: 
  Country: None (occurrence: None)
  Receive Date: 20111018
  Receipt Date: 20110420
  Transmission Date: 20120403
  Serious: No
  Sender: FDA-Public Use
  Company Number: US-ASTRAZENECA-2011SE23452

PATIENT
  Sex: Female

DRUGS (1)
  1. SYMBICORT [Suspect]
     Route: 055
     Dates: start: 20101201

REACTIONS (4)
  - SINUS HEADACHE [None]
  - BODY TEMPERATURE INCREASED [None]
  - EYE PAIN [None]
  - FATIGUE [None]
